FAERS Safety Report 16887713 (Version 1)
Quarter: 2019Q4

REPORT INFORMATION
  Report Type: Spontaneous
  Country: US (occurrence: US)
  Receive Date: 20191005
  Receipt Date: 20191005
  Transmission Date: 20200122
  Serious: No
  Sender: FDA-Public Use
  Company Number: US-HEALTHCARE PHARMACEUTICALS LTD.-2075335

PATIENT
  Sex: Female

DRUGS (5)
  1. MARIJUANA [Suspect]
     Active Substance: CANNABIS SATIVA SUBSP. INDICA TOP
  2. ANNELOTEPINE [Suspect]
     Active Substance: UNSPECIFIED INGREDIENT
  3. OTHER MEDICATIONS [Suspect]
     Active Substance: UNSPECIFIED INGREDIENT
  4. LOWFATTENED POTASSIUM [Suspect]
     Active Substance: POTASSIUM
  5. ATENOLOL. [Suspect]
     Active Substance: ATENOLOL
     Indication: PRODUCT USED FOR UNKNOWN INDICATION

REACTIONS (3)
  - Photosensitivity reaction [Unknown]
  - Drug interaction [Unknown]
  - Malaise [Unknown]
